FAERS Safety Report 4714137-0 (Version None)
Quarter: 2005Q3

REPORT INFORMATION
  Report Type: 
  Country: None (occurrence: None)
  Receive Date: 20050701
  Receipt Date: 20040910
  Transmission Date: 20060218
  Serious: Yes (Hospitalization)
  Sender: FDA-Public Use
  Company Number: 2004060006

PATIENT
  Age: 56 Year
  Sex: Female

DRUGS (5)
  1. ZOLOFT [Suspect]
     Indication: DEPRESSION
     Dosage: 50 MG (50 MG, 1 IN 1 D), ORAL
     Route: 048
  2. SCOPOLAMINE AMINOXIDE HYDROBROMIDE (SCOPOLAMINE AMINOXIDE HYDROBROMIDE [Suspect]
     Indication: SLEEP DISORDER
     Dates: start: 20040501, end: 20040501
  3. CLONAZEPAM [Concomitant]
  4. CONJUGATED ESTROGENS [Concomitant]
  5. ROFECOXIB [Concomitant]

REACTIONS (10)
  - CRYING [None]
  - DEPRESSION [None]
  - DRUG INEFFECTIVE [None]
  - HEADACHE [None]
  - MALAISE [None]
  - NERVOUSNESS [None]
  - TREMOR [None]
  - VOMITING [None]
  - WEIGHT DECREASED [None]
  - WEIGHT INCREASED [None]
